FAERS Safety Report 17544857 (Version 1)
Quarter: 2020Q1

REPORT INFORMATION
  Report Type: Spontaneous
  Country: US (occurrence: US)
  Receive Date: 20200306
  Receipt Date: 20200306
  Transmission Date: 20200409
  Serious: Yes (Other)
  Sender: FDA-Public Use
  Company Number: None

PATIENT
  Age: 45 Year
  Sex: Female
  Weight: 59.87 kg

DRUGS (6)
  1. MAGNESIUM [Concomitant]
     Active Substance: MAGNESIUM
  2. SUBOXONE [Suspect]
     Active Substance: BUPRENORPHINE HYDROCHLORIDE\NALOXONE HYDROCHLORIDE
     Indication: MYOFASCIAL PAIN SYNDROME
     Dosage: ?          OTHER DOSE:8-2MG;?
     Route: 060
     Dates: start: 20171208
  3. TIZANIDINE. [Concomitant]
     Active Substance: TIZANIDINE
  4. LYRICA [Concomitant]
     Active Substance: PREGABALIN
  5. SUBOXONE [Suspect]
     Active Substance: BUPRENORPHINE HYDROCHLORIDE\NALOXONE HYDROCHLORIDE
     Indication: DRUG DEPENDENCE
     Dosage: ?          OTHER DOSE:8-2MG;?
     Route: 060
     Dates: start: 20171208
  6. SUBOXONE [Concomitant]
     Active Substance: BUPRENORPHINE HYDROCHLORIDE\NALOXONE HYDROCHLORIDE

REACTIONS (9)
  - Pain [None]
  - Condition aggravated [None]
  - Muscle spasms [None]
  - Product substitution issue [None]
  - Insurance issue [None]
  - Nausea [None]
  - Vomiting [None]
  - Product use issue [None]
  - Stiff person syndrome [None]

NARRATIVE: CASE EVENT DATE: 20191212
